FAERS Safety Report 5753310-X (Version None)
Quarter: 2008Q2

REPORT INFORMATION
  Report Type: 
  Country: None (occurrence: None)
  Receive Date: 20080530
  Receipt Date: 20080214
  Transmission Date: 20081010
  Serious: No
  Sender: FDA-Public Use
  Company Number: A0709653A

PATIENT
  Age: 55 Year
  Sex: Female

DRUGS (3)
  1. VENTOLIN [Suspect]
     Indication: ASTHMA
     Dosage: 1PUFF TWICE PER DAY
     Route: 055
     Dates: start: 20080201, end: 20080201
  2. COMBIVENT [Concomitant]
  3. DIAZEPAM [Concomitant]

REACTIONS (2)
  - DYSPNOEA [None]
  - THERMAL BURN [None]
